FAERS Safety Report 10041576 (Version 2)
Quarter: 2018Q1

REPORT INFORMATION
  Report Type: Spontaneous
  Country: US (occurrence: US)
  Receive Date: 20140327
  Receipt Date: 20180305
  Transmission Date: 20180508
  Serious: No
  Sender: FDA-Public Use
  Company Number: US-PFIZER INC-2014086104

PATIENT
  Sex: Female
  Weight: 64.86 kg

DRUGS (1)
  1. EFFEXOR [Suspect]
     Active Substance: VENLAFAXINE HYDROCHLORIDE
     Dosage: 150 MG, 1X/DAY (150 MG 30 CT.; CAPSULE, ONCE A DAY)

REACTIONS (11)
  - Cardiac disorder [Unknown]
  - Chest pain [Unknown]
  - Dyspnoea [Unknown]
  - Hot flush [Unknown]
  - Palpitations [Unknown]
  - Poor quality drug administered [Unknown]
  - Cold sweat [Unknown]
  - Dizziness [Unknown]
  - Product quality issue [Unknown]
  - Feeling abnormal [Unknown]
  - Food poisoning [Unknown]
